FAERS Safety Report 6472263-2 (Version None)
Quarter: 2009Q4

REPORT INFORMATION
  Report Type: 
  Country: None (occurrence: None)
  Receive Date: 20091203
  Receipt Date: 20091123
  Transmission Date: 20100525
  Serious: Yes (Hospitalization, Other)
  Sender: FDA-Public Use
  Company Number: BR-ABBOTT-09P-020-0610297-00

PATIENT
  Sex: Male
  Weight: 69 kg

DRUGS (4)
  1. HUMIRA [Suspect]
     Indication: CROHN'S DISEASE
     Route: 058
     Dates: start: 20090803, end: 20090803
  2. HUMIRA [Suspect]
     Route: 058
  3. HUMIRA [Suspect]
     Route: 058
     Dates: end: 20091103
  4. PENTASA [Concomitant]
     Indication: CROHN'S DISEASE
     Route: 048

REACTIONS (9)
  - DIZZINESS [None]
  - ERYTHEMA [None]
  - HEADACHE [None]
  - INSOMNIA [None]
  - PNEUMONIA [None]
  - PRURITUS [None]
  - RASH MACULAR [None]
  - TUBERCULOSIS [None]
  - VOMITING [None]
